FAERS Safety Report 4315987-5 (Version None)
Quarter: 2004Q1

REPORT INFORMATION
  Report Type: 
  Country: None (occurrence: None)
  Receive Date: 20040310
  Receipt Date: 20040227
  Transmission Date: 20041129
  Serious: No
  Sender: FDA-Public Use
  Company Number: 04P-087-0251847-00

PATIENT
  Age: 83 Year
  Sex: Female

DRUGS (4)
  1. AKINETON [Suspect]
     Dosage: 3 MG PER DAY, PER ORAL
     Route: 048
     Dates: end: 20040127
  2. LODOPIN (ZOTEPINE) [Suspect]
     Indication: SCHIZOPHRENIA
     Dosage: 50 MG PER DAY, PER ORAL
     Route: 048
     Dates: end: 20040108
  3. TRIHEXYPHENIDYL HCL [Concomitant]
  4. SENNA [Concomitant]

REACTIONS (3)
  - CONVULSION [None]
  - ELECTROENCEPHALOGRAM ABNORMAL [None]
  - MASS [None]
